FAERS Safety Report 8476789-1 (Version None)
Quarter: 2012Q2

REPORT INFORMATION
  Report Type: 
  Country: None (occurrence: None)
  Receive Date: 20120628
  Receipt Date: 20120622
  Transmission Date: 20120825
  Serious: Yes (Hospitalization)
  Sender: FDA-Public Use
  Company Number: CA-ROCHE-1081084

PATIENT
  Age: 64 Year
  Sex: Female
  Weight: 55 kg

DRUGS (6)
  1. CYCLOPHOSPHAMIDE [Concomitant]
     Route: 042
  2. PREDNISONE TAB [Concomitant]
     Route: 048
  3. VINCRISTINE [Concomitant]
     Route: 042
  4. RITUXAN [Suspect]
     Indication: PRODUCT USED FOR UNKNOWN INDICATION
     Route: 042
  5. LIPITOR [Concomitant]
     Route: 065
  6. NEUPOGEN [Concomitant]
     Route: 058

REACTIONS (5)
  - HYPERSENSITIVITY [None]
  - MEAN CELL VOLUME DECREASED [None]
  - HAEMATOCRIT DECREASED [None]
  - PLATELET COUNT DECREASED [None]
  - HAEMOGLOBIN DECREASED [None]
